APPROVED DRUG PRODUCT: CLINDAMYCIN PHOSPHATE
Active Ingredient: CLINDAMYCIN PHOSPHATE
Strength: EQ 1% BASE
Dosage Form/Route: GEL;TOPICAL
Application: A064160 | Product #001 | TE Code: AB1
Applicant: FOUGERA PHARMACEUTICALS INC
Approved: Jan 28, 2000 | RLD: No | RS: No | Type: RX